FAERS Safety Report 8275256-8 (Version None)
Quarter: 2012Q2

REPORT INFORMATION
  Report Type: 
  Country: None (occurrence: None)
  Receive Date: 20120411
  Receipt Date: 20120403
  Transmission Date: 20120825
  Serious: Yes (Disabling)
  Sender: FDA-Public Use
  Company Number: GB-GILEAD-2012-0051126

PATIENT
  Age: 72 Year
  Sex: Female

DRUGS (9)
  1. TRACLEER [Concomitant]
     Indication: PRODUCT USED FOR UNKNOWN INDICATION
  2. ROSUVASTATIN [Concomitant]
     Indication: PRODUCT USED FOR UNKNOWN INDICATION
     Dosage: 5 MG, UNK
  3. AMBRISENTAN [Suspect]
     Indication: PULMONARY ARTERIAL HYPERTENSION
     Dosage: 5 UNK, UNK
     Route: 048
  4. DIGOXIN [Concomitant]
     Indication: PRODUCT USED FOR UNKNOWN INDICATION
     Dosage: 125 ?G, UNK
  5. CLENIL                             /00212602/ [Concomitant]
     Indication: PRODUCT USED FOR UNKNOWN INDICATION
  6. FUROSEMIDE [Concomitant]
     Indication: PRODUCT USED FOR UNKNOWN INDICATION
     Dosage: 20 MG, UNK
  7. AMBRISENTAN [Suspect]
     Dosage: 10 UNK, UNK
     Route: 048
     Dates: start: 20120117
  8. WARFARIN SODIUM [Concomitant]
     Indication: PRODUCT USED FOR UNKNOWN INDICATION
     Dosage: 4 MG, UNK
  9. CALCIUM CARBONATE [Concomitant]
     Indication: PRODUCT USED FOR UNKNOWN INDICATION
     Dosage: UNK DF, UNK

REACTIONS (4)
  - GAIT DISTURBANCE [None]
  - BALANCE DISORDER [None]
  - CEREBELLAR ATAXIA [None]
  - CEREBELLAR SYNDROME [None]
